FAERS Safety Report 11656659 (Version 1)
Quarter: 2015Q4

REPORT INFORMATION
  Report Type: Spontaneous
  Country: US (occurrence: US)
  Receive Date: 20151023
  Receipt Date: 20151023
  Transmission Date: 20160304
  Serious: Yes (Hospitalization, Disabling, Other)
  Sender: FDA-Public Use
  Company Number: US-BAYER-2015-446533

PATIENT
  Age: 41 Year
  Sex: Female

DRUGS (2)
  1. CIPRO [Suspect]
     Active Substance: CIPROFLOXACIN HYDROCHLORIDE
     Indication: INFECTION
     Dosage: UNK
     Dates: start: 20130922
  2. CIPRO [Suspect]
     Active Substance: CIPROFLOXACIN HYDROCHLORIDE
     Indication: INFECTION

REACTIONS (23)
  - Amnesia [None]
  - Hearing disability [None]
  - Burning sensation [None]
  - Dyspnoea [None]
  - Balance disorder [None]
  - Crying [None]
  - Sensation of foreign body [None]
  - Pruritus [None]
  - Dysstasia [None]
  - Paraesthesia oral [None]
  - General physical health deterioration [None]
  - Cognitive disorder [None]
  - Feeling abnormal [None]
  - Visual impairment [None]
  - Paraesthesia [None]
  - Nervous system disorder [None]
  - Pain [None]
  - Syncope [None]
  - Muscle spasms [None]
  - Gait disturbance [None]
  - Ligament sprain [None]
  - Dyspepsia [None]
  - Muscle twitching [None]
